FAERS Safety Report 22376807 (Version 1)
Quarter: 2023Q2

REPORT INFORMATION
  Report Type: Report from Study
  Country: MX (occurrence: MX)
  Receive Date: 20230528
  Receipt Date: 20230528
  Transmission Date: 20230721
  Serious: Yes (Congenital Anomaly, Other)
  Sender: FDA-Public Use
  Company Number: MX-ABBOTT-2023A-1363525

PATIENT
  Sex: Male

DRUGS (2)
  1. DIVALPROEX SODIUM [Suspect]
     Active Substance: DIVALPROEX SODIUM
     Indication: Maternal exposure timing unspecified
     Route: 064
  2. DIAZEPAM [Concomitant]
     Active Substance: DIAZEPAM
     Indication: Maternal exposure timing unspecified
     Route: 064

REACTIONS (4)
  - Talipes [Unknown]
  - Language disorder [Unknown]
  - Speech disorder developmental [Recovered/Resolved]
  - Foetal exposure during pregnancy [Unknown]
